FAERS Safety Report 17058388 (Version 4)
Quarter: 2021Q1

REPORT INFORMATION
  Report Type: Other
  Country: DE (occurrence: DE)
  Receive Date: 20191121
  Receipt Date: 20210324
  Transmission Date: 20210419
  Serious: No
  Sender: FDA-Public Use
  Company Number: DE-ROCHE-2453217

PATIENT
  Age: 53 Year
  Sex: Male

DRUGS (4)
  1. DIPHTHERIA VACCINE;PERTUSSIS VACCINE;TETANUS VACCINE [Suspect]
     Active Substance: DIPHTHERIA AND TETANUS TOXOIDS AND PERTUSSIS VACCINE
     Indication: PRODUCT USED FOR UNKNOWN INDICATION
     Route: 065
  2. L?THYROXIN [Concomitant]
     Active Substance: LEVOTHYROXINE SODIUM
  3. OCREVUS [Suspect]
     Active Substance: OCRELIZUMAB
     Route: 042
     Dates: start: 20210319
  4. OCREVUS [Suspect]
     Active Substance: OCRELIZUMAB
     Indication: RELAPSING-REMITTING MULTIPLE SCLEROSIS
     Dosage: ON 20/SEP/2018 AND 23/SEP/2018, HE RECEIVED OCRELIZUMAB INFUSION.
     Route: 042
     Dates: start: 20180323

REACTIONS (4)
  - Dizziness [Recovered/Resolved]
  - Tuberculin test positive [Recovered/Resolved]
  - Headache [Recovered/Resolved]
  - Blood immunoglobulin A decreased [Recovered/Resolved]

NARRATIVE: CASE EVENT DATE: 20190827
